FAERS Safety Report 19710570 (Version 1)
Quarter: 2021Q3

REPORT INFORMATION
  Report Type: Spontaneous
  Country: US (occurrence: US)
  Receive Date: 20210817
  Receipt Date: 20210817
  Transmission Date: 20211014
  Serious: No
  Sender: FDA-Public Use
  Company Number: US-CELGENEUS-USA-20210802661

PATIENT
  Sex: Female

DRUGS (3)
  1. ONUREG [Suspect]
     Active Substance: AZACITIDINE
     Dosage: 200 MILLIGRAM (REDUCED DOSE)
     Route: 048
  2. ONUREG [Suspect]
     Active Substance: AZACITIDINE
     Indication: PRODUCT USED FOR UNKNOWN INDICATION
     Dosage: 300 MILLIGRAM
     Route: 048
  3. ONUREG [Suspect]
     Active Substance: AZACITIDINE
     Dosage: 300 MILLIGRAM
     Route: 048

REACTIONS (1)
  - Vomiting [Unknown]
